FAERS Safety Report 10562450 (Version 1)
Quarter: 2014Q4

REPORT INFORMATION
  Report Type: Spontaneous
  Country: US (occurrence: None)
  Receive Date: 20141103
  Receipt Date: 20141103
  Transmission Date: 20150529
  Serious: No
  Sender: FDA-Public Use
  Company Number: None

PATIENT
  Age: 55 Year
  Sex: Male
  Weight: 102.06 kg

DRUGS (1)
  1. CIPROFLOXACIN. [Suspect]
     Active Substance: CIPROFLOXACIN
     Indication: DIVERTICULITIS
     Dosage: 1 PILL
     Route: 048
     Dates: start: 20131115, end: 20131116

REACTIONS (8)
  - Amnesia [None]
  - Visual impairment [None]
  - Balance disorder [None]
  - Dizziness [None]
  - Malaise [None]
  - Asthenia [None]
  - Hearing impaired [None]
  - Feeling abnormal [None]

NARRATIVE: CASE EVENT DATE: 20121115
